FAERS Safety Report 16305579 (Version 2)
Quarter: 2020Q4

REPORT INFORMATION
  Report Type: Spontaneous
  Country: US (occurrence: US)
  Receive Date: 20190513
  Receipt Date: 20201224
  Transmission Date: 20210113
  Serious: Yes (Hospitalization, Other)
  Sender: FDA-Public Use
  Company Number: US-ASTRAZENECA-2019SE65447

PATIENT
  Age: 448 Month
  Sex: Male
  Weight: 65.8 kg

DRUGS (62)
  1. PENICILLIN [Concomitant]
     Active Substance: PENICILLIN
  2. DECADRON [Concomitant]
     Active Substance: DEXAMETHASONE
  3. HEPARIN [Concomitant]
     Active Substance: HEPARIN SODIUM
  4. TYLENOL [Concomitant]
     Active Substance: ACETAMINOPHEN
  5. ATIVAN [Concomitant]
     Active Substance: LORAZEPAM
  6. PRILOSEC [Suspect]
     Active Substance: OMEPRAZOLE MAGNESIUM
     Indication: GASTROOESOPHAGEAL REFLUX DISEASE
     Route: 048
     Dates: start: 1998, end: 2013
  7. OXYCODONE [Concomitant]
     Active Substance: OXYCODONE
     Indication: ANALGESIC THERAPY
     Dates: start: 20101102, end: 20110516
  8. ALBUTEROL. [Concomitant]
     Active Substance: ALBUTEROL
  9. DILAUDID [Concomitant]
     Active Substance: HYDROMORPHONE HYDROCHLORIDE
  10. RENVELA [Concomitant]
     Active Substance: SEVELAMER CARBONATE
  11. NITROGLYCERIN. [Concomitant]
     Active Substance: NITROGLYCERIN
  12. PRILOSEC [Suspect]
     Active Substance: OMEPRAZOLE MAGNESIUM
     Indication: GASTROOESOPHAGEAL REFLUX DISEASE
     Dosage: GENERIC
     Route: 065
     Dates: start: 2013
  13. PANTOPRAZOLE [Suspect]
     Active Substance: PANTOPRAZOLE
     Indication: GASTROOESOPHAGEAL REFLUX DISEASE
     Route: 065
     Dates: start: 20131015, end: 20131214
  14. CLONAZEPAM. [Concomitant]
     Active Substance: CLONAZEPAM
     Indication: SLEEP DISORDER
     Dates: start: 20120914, end: 20140813
  15. SEROQUEL [Concomitant]
     Active Substance: QUETIAPINE FUMARATE
  16. ZOFRAN [Concomitant]
     Active Substance: ONDANSETRON HYDROCHLORIDE
  17. CEPACOL [Concomitant]
     Active Substance: BENZOCAINE
  18. SIMETHICONE (DIMETHICONE) [Concomitant]
     Active Substance: DIMETHICONE
  19. POLYVINYL [Concomitant]
  20. SUBOXONE [Concomitant]
     Active Substance: BUPRENORPHINE HYDROCHLORIDE\NALOXONE HYDROCHLORIDE
  21. CARDENE [Concomitant]
     Active Substance: NICARDIPINE HYDROCHLORIDE
  22. SPIRIVA [Concomitant]
     Active Substance: TIOTROPIUM BROMIDE MONOHYDRATE
  23. BENTYL [Concomitant]
     Active Substance: DICYCLOMINE HYDROCHLORIDE
  24. ATIVAN [Concomitant]
     Active Substance: LORAZEPAM
  25. PRILOSEC [Suspect]
     Active Substance: OMEPRAZOLE MAGNESIUM
     Indication: GASTROOESOPHAGEAL REFLUX DISEASE
     Route: 048
     Dates: start: 199801, end: 200812
  26. ZANTAC [Concomitant]
     Active Substance: RANITIDINE HYDROCHLORIDE
     Dosage: GENERIC
     Dates: start: 200710, end: 201006
  27. ASPIRIN. [Concomitant]
     Active Substance: ASPIRIN
  28. CHLORHEXIDINE [Concomitant]
     Active Substance: CHLORHEXIDINE
  29. ZOLPIDEM [Concomitant]
     Active Substance: ZOLPIDEM TARTRATE
  30. REGLAN [Concomitant]
     Active Substance: METOCLOPRAMIDE HYDROCHLORIDE
  31. CALCIUM CARBONATE. [Concomitant]
     Active Substance: CALCIUM CARBONATE
  32. TUMS [Concomitant]
     Active Substance: CALCIUM CARBONATE
  33. SERTRALINE [Concomitant]
     Active Substance: SERTRALINE HYDROCHLORIDE
  34. ZANTAC [Concomitant]
     Active Substance: RANITIDINE HYDROCHLORIDE
     Dosage: 150
     Dates: start: 2002, end: 2003
  35. ZANTAC [Concomitant]
     Active Substance: RANITIDINE HYDROCHLORIDE
     Dosage: GENERIC
     Dates: start: 201411, end: 201706
  36. BUSPAR [Concomitant]
     Active Substance: BUSPIRONE HYDROCHLORIDE
  37. PROPOFOL. [Concomitant]
     Active Substance: PROPOFOL
  38. HALOPERIDOL. [Concomitant]
     Active Substance: HALOPERIDOL
  39. MORPHINE [Concomitant]
     Active Substance: MORPHINE
  40. TRAMADOL. [Concomitant]
     Active Substance: TRAMADOL
  41. CALCIUM GLUCONATE. [Concomitant]
     Active Substance: CALCIUM GLUCONATE
  42. DEXTROSE. [Concomitant]
     Active Substance: DEXTROSE
  43. CLONIDINE. [Concomitant]
     Active Substance: CLONIDINE
  44. COMPAZINE [Concomitant]
     Active Substance: PROCHLORPERAZINE MALEATE
  45. IBUPROFEN. [Concomitant]
     Active Substance: IBUPROFEN
     Indication: HEADACHE
  46. SUBLIMAZE [Concomitant]
     Active Substance: FENTANYL CITRATE
  47. VANCOMYCIN [Concomitant]
     Active Substance: VANCOMYCIN
  48. LOPERAMIDE [Concomitant]
     Active Substance: LOPERAMIDE
  49. PRILOSEC [Suspect]
     Active Substance: OMEPRAZOLE MAGNESIUM
     Indication: GASTROOESOPHAGEAL REFLUX DISEASE
     Route: 048
     Dates: start: 20130509
  50. HYDROCODONE [Concomitant]
     Active Substance: HYDROCODONE
     Indication: ANALGESIC THERAPY
     Dates: start: 20100823, end: 20101122
  51. MIDAZOLAM. [Concomitant]
     Active Substance: MIDAZOLAM
  52. NUBAIN [Concomitant]
     Active Substance: NALBUPHINE HYDROCHLORIDE
  53. HYDROMORPHONE [Concomitant]
     Active Substance: HYDROMORPHONE
  54. PRILOSEC [Suspect]
     Active Substance: OMEPRAZOLE MAGNESIUM
     Indication: GASTROOESOPHAGEAL REFLUX DISEASE
     Dosage: GENERIC
     Route: 065
     Dates: start: 20120308, end: 20120619
  55. PANTOPRAZOLE [Suspect]
     Active Substance: PANTOPRAZOLE
     Indication: GASTROOESOPHAGEAL REFLUX DISEASE
     Route: 065
     Dates: start: 2013
  56. CIPROFLOXACIN. [Concomitant]
     Active Substance: CIPROFLOXACIN
  57. LIDOCAINE. [Concomitant]
     Active Substance: LIDOCAINE
  58. PEPCID [Concomitant]
     Active Substance: FAMOTIDINE
  59. BENADRYL [Concomitant]
     Active Substance: DIPHENHYDRAMINE HYDROCHLORIDE
  60. DOCUSATE [Concomitant]
     Active Substance: DOCUSATE
  61. LISINOPRIL. [Concomitant]
     Active Substance: LISINOPRIL
  62. PREDNISONE. [Concomitant]
     Active Substance: PREDNISONE

REACTIONS (6)
  - End stage renal disease [Not Recovered/Not Resolved]
  - Nephrogenic anaemia [Unknown]
  - Chronic kidney disease [Not Recovered/Not Resolved]
  - Hyperparathyroidism secondary [Unknown]
  - Chronic kidney disease-mineral and bone disorder [Unknown]
  - Renal failure [Unknown]

NARRATIVE: CASE EVENT DATE: 201007
